FAERS Safety Report 7091070-3 (Version None)
Quarter: 2010Q4

REPORT INFORMATION
  Report Type: 
  Country: None (occurrence: None)
  Receive Date: 20101109
  Receipt Date: 20101028
  Transmission Date: 20110411
  Serious: Yes (Hospitalization)
  Sender: FDA-Public Use
  Company Number: PHHY2010DE73300

PATIENT
  Age: 77 Year
  Sex: Male

DRUGS (3)
  1. RASILEZ [Suspect]
  2. ANGIOTENSIN II ANTAGONISTS [Concomitant]
  3. SPIRONOLACTONE [Concomitant]

REACTIONS (1)
  - RENAL FAILURE [None]
